FAERS Safety Report 5469631-4 (Version None)
Quarter: 2007Q3

REPORT INFORMATION
  Report Type: 
  Country: None (occurrence: None)
  Receive Date: 20070927
  Receipt Date: 20070917
  Transmission Date: 20080115
  Serious: Yes (Hospitalization)
  Sender: FDA-Public Use
  Company Number: PHEH2007US11299

PATIENT
  Age: 64 Year
  Sex: Female

DRUGS (1)
  1. LOTREL [Suspect]
     Route: 048

REACTIONS (7)
  - ANGIOEDEMA [None]
  - DIARRHOEA [None]
  - DYSSTASIA [None]
  - HAEMATOCHEZIA [None]
  - HYPOTENSION [None]
  - INTESTINAL CONGESTION [None]
  - LYMPHOCYTE COUNT DECREASED [None]
